FAERS Safety Report 15502802 (Version 1)
Quarter: 2018Q4

REPORT INFORMATION
  Report Type: Spontaneous
  Country: US (occurrence: US)
  Receive Date: 20181008
  Receipt Date: 20181008
  Transmission Date: 20190205
  Serious: Yes (Disabling, Other)
  Sender: FDA-Public Use
  Company Number: None

PATIENT
  Age: 52 Year
  Sex: Female
  Weight: 72.9 kg

DRUGS (5)
  1. ONE A DAY MULTI VITAMIN [Concomitant]
  2. ADVAIR DISKUS [Suspect]
     Active Substance: FLUTICASONE PROPIONATE\SALMETEROL XINAFOATE
     Indication: ASTHMA
     Dosage: ?          OTHER STRENGTH:UNSURE;QUANTITY:60 PUFF(S);?
     Route: 055
     Dates: start: 20181005, end: 20181008
  3. ADVAIR DISKUS [Suspect]
     Active Substance: FLUTICASONE PROPIONATE\SALMETEROL XINAFOATE
     Indication: RESPIRATORY DISORDER
     Dosage: ?          OTHER STRENGTH:UNSURE;QUANTITY:60 PUFF(S);?
     Route: 055
     Dates: start: 20181005, end: 20181008
  4. ALBUTEROL. [Concomitant]
     Active Substance: ALBUTEROL
  5. SPACER [Concomitant]

REACTIONS (9)
  - Feeling abnormal [None]
  - Amnesia [None]
  - Bradykinesia [None]
  - Euphoric mood [None]
  - Asthenia [None]
  - Fear [None]
  - Depressed mood [None]
  - Disturbance in attention [None]
  - Dizziness [None]

NARRATIVE: CASE EVENT DATE: 20181008
